FAERS Safety Report 10681889 (Version 1)
Quarter: 2014Q4

REPORT INFORMATION
  Report Type: Spontaneous
  Country: US (occurrence: None)
  Receive Date: 20141229
  Receipt Date: 20141229
  Transmission Date: 20150529
  Serious: Yes (Other)
  Sender: FDA-Public Use
  Company Number: None

PATIENT

DRUGS (1)
  1. LIDOCAINE. [Suspect]
     Active Substance: LIDOCAINE
     Dates: start: 20141224, end: 20141224

REACTIONS (2)
  - Product container seal issue [None]
  - Accidental exposure to product [None]

NARRATIVE: CASE EVENT DATE: 20141224
